FAERS Safety Report 5726444-3 (Version None)
Quarter: 2008Q2

REPORT INFORMATION
  Report Type: 
  Country: None (occurrence: None)
  Receive Date: 20080502
  Receipt Date: 20080430
  Transmission Date: 20081010
  Serious: Yes (Hospitalization)
  Sender: FDA-Public Use
  Company Number: B0516108A

PATIENT
  Age: 60 Year
  Sex: Female

DRUGS (1)
  1. HEPTODIN [Suspect]
     Indication: HEPATIC CIRRHOSIS
     Dosage: 100MG PER DAY
     Route: 048
     Dates: start: 20060101

REACTIONS (4)
  - HAEMOLYSIS [None]
  - JAUNDICE [None]
  - PAIN [None]
  - PYREXIA [None]
